FAERS Safety Report 8207703-1 (Version None)
Quarter: 2012Q1

REPORT INFORMATION
  Report Type: 
  Country: None (occurrence: None)
  Receive Date: 20120314
  Receipt Date: 20120314
  Transmission Date: 20120608
  Serious: Yes (Other)
  Sender: FDA-Public Use
  Company Number: US-JNJFOC-20120302854

PATIENT
  Sex: Female
  Weight: 65.77 kg

DRUGS (18)
  1. NIACIN [Concomitant]
     Indication: PRODUCT USED FOR UNKNOWN INDICATION
     Route: 065
  2. ATIVAN [Concomitant]
     Indication: PRODUCT USED FOR UNKNOWN INDICATION
     Route: 065
  3. PHENERGAN [Concomitant]
     Indication: PRODUCT USED FOR UNKNOWN INDICATION
     Route: 048
  4. LEVSIN [Concomitant]
     Route: 060
     Dates: start: 20120117
  5. PROTONIX [Concomitant]
     Indication: GASTROOESOPHAGEAL REFLUX DISEASE
     Route: 065
  6. CREON [Concomitant]
     Indication: PRODUCT USED FOR UNKNOWN INDICATION
     Route: 048
  7. CARISOPRODOL [Suspect]
     Indication: MUSCLE SPASMS
     Route: 048
  8. SINGULAIR [Concomitant]
     Indication: HYPERSENSITIVITY
     Route: 048
  9. ZOLOFT [Concomitant]
     Indication: PRODUCT USED FOR UNKNOWN INDICATION
     Route: 065
  10. PERCOCET [Suspect]
     Indication: PRODUCT USED FOR UNKNOWN INDICATION
     Route: 065
  11. CARAFATE [Concomitant]
     Route: 048
  12. DURAGESIC-100 [Suspect]
     Indication: PRODUCT USED FOR UNKNOWN INDICATION
     Route: 062
  13. URISPAS [Suspect]
     Indication: PRODUCT USED FOR UNKNOWN INDICATION
     Dosage: 2 TO 3 TIMES THE NORMAL DOSE
     Route: 065
  14. REMERON [Concomitant]
     Indication: PRODUCT USED FOR UNKNOWN INDICATION
     Route: 065
  15. LEVSIN [Concomitant]
     Route: 060
     Dates: start: 20100101, end: 20120101
  16. LIDODERM [Suspect]
     Indication: PRODUCT USED FOR UNKNOWN INDICATION
     Route: 065
  17. ALLEGRA [Concomitant]
     Indication: PRODUCT USED FOR UNKNOWN INDICATION
     Route: 048
  18. LEVSIN [Concomitant]
     Indication: CYSTITIS INTERSTITIAL
     Route: 060
     Dates: start: 19940101, end: 20100101

REACTIONS (1)
  - SUICIDE ATTEMPT [None]
